FAERS Safety Report 16234529 (Version 1)
Quarter: 2019Q2

REPORT INFORMATION
  Report Type: Spontaneous
  Country: BR (occurrence: BR)
  Receive Date: 20190424
  Receipt Date: 20190424
  Transmission Date: 20190711
  Serious: Yes (Other)
  Sender: FDA-Public Use
  Company Number: BR-PFIZER INC-2019170723

PATIENT
  Age: 67 Year
  Sex: Female

DRUGS (2)
  1. XALATAN [Suspect]
     Active Substance: LATANOPROST
     Dosage: ONE DROP IN BOTH EYES ONCE A DAY
     Route: 047
  2. XALATAN [Suspect]
     Active Substance: LATANOPROST
     Dosage: SHE IS USING ONE DROP IN BOTH EYES TWICE A DAY

REACTIONS (3)
  - Product use issue [Unknown]
  - Cataract [Unknown]
  - Glaucoma [Unknown]
